FAERS Safety Report 9128889 (Version 1)
Quarter: 2013Q1

REPORT INFORMATION
  Report Type: Report from Study
  Country: US (occurrence: US)
  Receive Date: 20130228
  Receipt Date: 20130228
  Transmission Date: 20140127
  Serious: Yes (Other)
  Sender: FDA-Public Use
  Company Number: US-BAYER-2013-002767

PATIENT
  Age: 46 Year
  Sex: Female

DRUGS (4)
  1. BETASERON [Suspect]
     Indication: RELAPSING-REMITTING MULTIPLE SCLEROSIS
     Dosage: 8 MIU, QOD
     Route: 058
     Dates: start: 20121008
  2. SOLU-MEDROL [Suspect]
     Indication: PAIN IN EXTREMITY
     Dosage: UNK
     Route: 042
     Dates: start: 20130105, end: 20130107
  3. SOLU-MEDROL [Suspect]
     Indication: HYPOAESTHESIA
  4. ALEVE GELCAP [Concomitant]

REACTIONS (8)
  - Hypoaesthesia [Not Recovered/Not Resolved]
  - Arthralgia [Not Recovered/Not Resolved]
  - Back pain [Not Recovered/Not Resolved]
  - Tremor [Not Recovered/Not Resolved]
  - Chest pain [Recovered/Resolved]
  - Pain in extremity [None]
  - Pain in extremity [None]
  - Multiple sclerosis [None]
